FAERS Safety Report 20192195 (Version 4)
Quarter: 2022Q3

REPORT INFORMATION
  Report Type: Other
  Country: JP (occurrence: JP)
  Receive Date: 20211216
  Receipt Date: 20220809
  Transmission Date: 20221026
  Serious: Yes (Death, Other)
  Sender: FDA-Public Use
  Company Number: JP-CHUGAI-2021030805

PATIENT
  Age: 79 Year
  Sex: Male
  Weight: 46.5 kg

DRUGS (4)
  1. POLATUZUMAB VEDOTIN [Suspect]
     Active Substance: POLATUZUMAB VEDOTIN
     Indication: Diffuse large B-cell lymphoma
     Dosage: MOST RECENT DOSE ON 19/JUL/2021
     Route: 041
     Dates: start: 20210629
  2. RITUXAN [Concomitant]
     Active Substance: RITUXIMAB
     Indication: Diffuse large B-cell lymphoma
     Dosage: UNK
     Route: 041
  3. BENDAMUSTINE HYDROCHLORIDE [Concomitant]
     Active Substance: BENDAMUSTINE HYDROCHLORIDE
     Indication: Diffuse large B-cell lymphoma
     Dosage: UNK
     Route: 041
  4. ENTECAVIR [Concomitant]
     Active Substance: ENTECAVIR
     Indication: Infection prophylaxis
     Dosage: UNK
     Route: 065
     Dates: end: 20210719

REACTIONS (3)
  - Adrenal insufficiency [Fatal]
  - Tumour lysis syndrome [Unknown]
  - Cardiac arrest [Fatal]

NARRATIVE: CASE EVENT DATE: 20210720
